FAERS Safety Report 4974524-2 (Version None)
Quarter: 2006Q1

REPORT INFORMATION
  Report Type: 
  Country: None (occurrence: None)
  Receive Date: 20060216
  Receipt Date: 20051208
  Transmission Date: 20060701
  Serious: No
  Sender: FDA-Public Use
  Company Number: TPA2005A01351

PATIENT
  Age: 49 Year
  Sex: Female
  Weight: 56.6996 kg

DRUGS (8)
  1. ROZEREM [Suspect]
     Indication: INSOMNIA
     Dosage: 8 MG PER ORAL
     Route: 048
     Dates: start: 20051012, end: 20051012
  2. UNKNOWN ANTIDEPRESSANTS (ANTIDEPRESSANTS) [Concomitant]
  3. UNKNOWN ANTIPSYCHOTICS (ANTIPSYCHOTICS) [Concomitant]
  4. SEASONALE (EUGYNON) [Concomitant]
  5. AXERT [Concomitant]
  6. AMBIEN [Concomitant]
  7. LUNESTA [Concomitant]
  8. SONATA [Concomitant]

REACTIONS (2)
  - AGITATION [None]
  - INSOMNIA [None]
